FAERS Safety Report 10182468 (Version 1)
Quarter: 2014Q2

REPORT INFORMATION
  Report Type: Spontaneous
  Country: US (occurrence: None)
  Receive Date: 20140519
  Receipt Date: 20140519
  Transmission Date: 20141212
  Serious: Yes (Life-Threatening, Hospitalization, Disabling, Other)
  Sender: FDA-Public Use
  Company Number: None

PATIENT
  Age: 41 Year
  Sex: Female
  Weight: 56.25 kg

DRUGS (1)
  1. METHYLPREDNISONE ACETATE [Suspect]
     Indication: SCIATICA
     Dosage: ONE DOSE?ONE TIME ?INJECTED INTO SPINAL AREA

REACTIONS (19)
  - Product contamination [None]
  - Meningitis fungal [None]
  - Exposure to mould [None]
  - Cerebrovascular accident [None]
  - Aneurysm [None]
  - Arachnoiditis [None]
  - Decreased activity [None]
  - Alopecia [None]
  - Urinary incontinence [None]
  - Liver disorder [None]
  - Renal disorder [None]
  - Hypoaesthesia [None]
  - Gait disturbance [None]
  - Sensory loss [None]
  - Dysstasia [None]
  - Fall [None]
  - Weight decreased [None]
  - Depression [None]
  - Pain [None]
